FAERS Safety Report 15674675 (Version 1)
Quarter: 2018Q4

REPORT INFORMATION
  Report Type: Report from Study
  Country: None (occurrence: US)
  Receive Date: 20181130
  Receipt Date: 20181130
  Transmission Date: 20190205
  Serious: Yes (Hospitalization, Other)
  Sender: FDA-Public Use
  Company Number: US-ABBVIE-18K-163-2378227-00

PATIENT
  Age: 68 Year
  Sex: Male
  Weight: 89.44 kg

DRUGS (7)
  1. HUMIRA [Suspect]
     Active Substance: ADALIMUMAB
     Indication: RHEUMATOID ARTHRITIS
     Route: 058
     Dates: start: 2018
  2. AMLODIPINE [Concomitant]
     Active Substance: AMLODIPINE BESYLATE
     Indication: HYPERTENSION
  3. HUMIRA [Suspect]
     Active Substance: ADALIMUMAB
     Route: 058
     Dates: start: 20180630
  4. OXYCODONE [Suspect]
     Active Substance: OXYCODONE
     Indication: PRODUCT USED FOR UNKNOWN INDICATION
     Route: 065
  5. VITAMIN D3 [Concomitant]
     Active Substance: CHOLECALCIFEROL
     Indication: VITAMIN SUPPLEMENTATION
  6. HUMIRA [Suspect]
     Active Substance: ADALIMUMAB
     Indication: RHEUMATOID ARTHRITIS
     Route: 058
     Dates: start: 2016
  7. FINASTERIDE. [Concomitant]
     Active Substance: FINASTERIDE
     Indication: PROSTATIC DISORDER

REACTIONS (7)
  - Osteoarthritis [Recovering/Resolving]
  - Rheumatoid arthritis [Unknown]
  - Hypoglycaemia [Unknown]
  - Astigmatism [Not Recovered/Not Resolved]
  - Post procedural swelling [Recovering/Resolving]
  - Pain [Recovering/Resolving]
  - Cataract [Recovering/Resolving]

NARRATIVE: CASE EVENT DATE: 2016
